FAERS Safety Report 5017989-2 (Version None)
Quarter: 2006Q2

REPORT INFORMATION
  Report Type: 
  Country: None (occurrence: None)
  Receive Date: 20060602
  Receipt Date: 20060602
  Transmission Date: 20061013
  Serious: Yes (Death, Life-Threatening)
  Sender: FDA-Public Use
  Company Number: None

PATIENT
  Age: 9 Year
  Sex: Male
  Weight: 30.391 kg

DRUGS (1)
  1. FENTANYL [Suspect]
     Indication: PAIN
     Dosage: 100 MCG/H
     Dates: start: 20060510, end: 20060512

REACTIONS (6)
  - DIARRHOEA [None]
  - DISORIENTATION [None]
  - ORAL INTAKE REDUCED [None]
  - POLLAKIURIA [None]
  - RESPIRATORY RATE DECREASED [None]
  - THIRST [None]
